FAERS Safety Report 18253252 (Version 2)
Quarter: 2020Q3

REPORT INFORMATION
  Report Type: Report from Study
  Country: US (occurrence: US)
  Receive Date: 20200910
  Receipt Date: 20200914
  Transmission Date: 20201103
  Serious: Yes (Hospitalization, Other)
  Sender: FDA-Public Use
  Company Number: NVSC2020US245027

PATIENT
  Age: 68 Year
  Sex: Female

DRUGS (1)
  1. ENTRESTO [Suspect]
     Active Substance: SACUBITRIL\VALSARTAN
     Indication: CARDIAC FAILURE
     Dosage: 1 DF, BID (49.51 MG)
     Route: 048
     Dates: start: 201911

REACTIONS (15)
  - Dizziness [Unknown]
  - Blood glucose abnormal [Unknown]
  - Blood cholesterol increased [Unknown]
  - Blood sodium decreased [Unknown]
  - Atrial fibrillation [Unknown]
  - Rectal haemorrhage [Not Recovered/Not Resolved]
  - Dyspnoea [Unknown]
  - Weight decreased [Unknown]
  - Stress [Unknown]
  - Amnesia [Unknown]
  - Abdominal pain upper [Unknown]
  - Urinary incontinence [Unknown]
  - Decreased appetite [Unknown]
  - Flushing [Unknown]
  - Anal incontinence [Unknown]

NARRATIVE: CASE EVENT DATE: 201911
